FAERS Safety Report 16567994 (Version 1)
Quarter: 2019Q3

REPORT INFORMATION
  Report Type: Not Available
  Country: US (occurrence: US)
  Receive Date: 20190712
  Receipt Date: 20190712
  Transmission Date: 20191004
  Serious: No
  Sender: FDA-Public Use
  Company Number: US-NEUROCRINE BIOSCIENCES INC.-2019NBI01809

PATIENT
  Age: 60 Year
  Sex: Female

DRUGS (1)
  1. INGREZZA [Suspect]
     Active Substance: VALBENAZINE
     Indication: TARDIVE DYSKINESIA
     Route: 048
     Dates: start: 20190610, end: 20190630

REACTIONS (3)
  - Gait disturbance [Unknown]
  - Tremor [Unknown]
  - Balance disorder [Unknown]

NARRATIVE: CASE EVENT DATE: 201906
